FAERS Safety Report 14233784 (Version 1)
Quarter: 2017Q4

REPORT INFORMATION
  Report Type: Spontaneous
  Country: US (occurrence: US)
  Receive Date: 20171128
  Receipt Date: 20171128
  Transmission Date: 20180321
  Serious: Yes (Other)
  Sender: FDA-Public Use
  Company Number: US-BAUSCH-BL-2017-006901

PATIENT
  Age: 4 Year
  Sex: Male
  Weight: 12.53 kg

DRUGS (7)
  1. DIURIL [Suspect]
     Active Substance: CHLOROTHIAZIDE
     Route: 048
     Dates: start: 2017, end: 20170310
  2. VITAMIN D [Concomitant]
     Active Substance: CHOLECALCIFEROL
     Indication: VITAMIN SUPPLEMENTATION
     Route: 048
     Dates: start: 2014
  3. LATANOPROST. [Concomitant]
     Active Substance: LATANOPROST
     Indication: GLAUCOMA
     Dosage: IN RIGHT EYE
     Route: 047
     Dates: start: 2014
  4. DIURIL [Suspect]
     Active Substance: CHLOROTHIAZIDE
     Indication: FANCONI SYNDROME
     Route: 048
     Dates: start: 2013
  5. PHOSPHOLINE IODIDE [Concomitant]
     Active Substance: ECHOTHIOPHATE IODIDE
     Indication: GLAUCOMA
     Dosage: IN RIGHT EYE
     Route: 047
     Dates: start: 2014
  6. ENALAPRIL [Suspect]
     Active Substance: ENALAPRIL
     Indication: RENAL DISORDER
     Route: 048
     Dates: start: 20170301
  7. POTASSIUM SUPPLEMENT [Concomitant]
     Active Substance: POTASSIUM
     Indication: FANCONI SYNDROME
     Route: 048
     Dates: start: 2016

REACTIONS (6)
  - Hypokalaemia [Unknown]
  - Pollakiuria [Recovering/Resolving]
  - Drug dispensing error [Unknown]
  - Product quality issue [Unknown]
  - Hyponatraemia [Unknown]
  - Thirst [Recovering/Resolving]

NARRATIVE: CASE EVENT DATE: 20170304
